FAERS Safety Report 5915484-7 (Version None)
Quarter: 2008Q4

REPORT INFORMATION
  Report Type: 
  Country: None (occurrence: None)
  Receive Date: 20081010
  Receipt Date: 20081001
  Transmission Date: 20090506
  Serious: No
  Sender: FDA-Public Use
  Company Number: JP-ELI_LILLY_AND_COMPANY-JP200810001693

PATIENT
  Age: 17 Year
  Sex: Female

DRUGS (4)
  1. ZYPREXA [Suspect]
     Indication: PSYCHOTIC DISORDER
     Route: 048
  2. VALPROATE SODIUM [Concomitant]
     Indication: PSYCHOTIC DISORDER
  3. RISPERIDONE [Concomitant]
     Indication: PSYCHOTIC DISORDER
  4. CARBAMAZEPINE [Concomitant]
     Indication: PSYCHOTIC DISORDER

REACTIONS (2)
  - EXTRAPYRAMIDAL DISORDER [None]
  - WHITE BLOOD CELL COUNT DECREASED [None]
